FAERS Safety Report 9188115 (Version 1)
Quarter: 2013Q1

REPORT INFORMATION
  Report Type: Spontaneous
  Country: US (occurrence: US)
  Receive Date: 20130325
  Receipt Date: 20130325
  Transmission Date: 20140127
  Serious: No
  Sender: FDA-Public Use
  Company Number: US-ASTRAZENECA-2012SE01283

PATIENT
  Age: 46 Year
  Sex: Female

DRUGS (12)
  1. NEXIUM [Suspect]
     Route: 048
  2. OMEPRAZOL [Suspect]
     Dosage: GENERIC
     Route: 048
  3. LYRICA [Concomitant]
  4. ADVAIR [Concomitant]
  5. HYDROCODONE [Concomitant]
  6. XANAX [Concomitant]
  7. NORTRIPTYLINE [Concomitant]
  8. CYCLOBENZAPRINE [Concomitant]
  9. OVERCOUNTER STOOL SOFTNER [Concomitant]
  10. PROAIR [Concomitant]
  11. POTASSIUM [Concomitant]
  12. VIT D [Concomitant]

REACTIONS (3)
  - Nausea [Unknown]
  - Drug dose omission [Unknown]
  - Drug ineffective [Unknown]
